FAERS Safety Report 8138196-0 (Version None)
Quarter: 2012Q1

REPORT INFORMATION
  Report Type: 
  Country: None (occurrence: None)
  Receive Date: 20120215
  Receipt Date: 20120207
  Transmission Date: 20120608
  Serious: Yes (Other)
  Sender: FDA-Public Use
  Company Number: US-ASTELLAS-2012US001715

PATIENT

DRUGS (3)
  1. TACROLIMUS [Suspect]
     Indication: LIVER TRANSPLANT
     Dosage: UNK
     Route: 065
     Dates: start: 20110101, end: 20110101
  2. PROGRAF [Suspect]
     Indication: LIVER TRANSPLANT
     Dosage: 2 MG, BID
     Route: 048
     Dates: start: 20090109, end: 20110101
  3. PROGRAF [Suspect]
     Dosage: 2 MG, BID
     Route: 048
     Dates: start: 20110101

REACTIONS (3)
  - BILIARY DRAINAGE [None]
  - RENAL IMPAIRMENT [None]
  - LIVER TRANSPLANT [None]
